FAERS Safety Report 19803959 (Version 1)
Quarter: 2021Q3

REPORT INFORMATION
  Report Type: Spontaneous
  Country: SE (occurrence: SE)
  Receive Date: 20210908
  Receipt Date: 20210908
  Transmission Date: 20211014
  Serious: Yes (Hospitalization)
  Sender: FDA-Public Use
  Company Number: SE-TEVA-2021-SE-1949718

PATIENT
  Age: 73 Year
  Sex: Male

DRUGS (7)
  1. RAMIPRIL. [Concomitant]
     Active Substance: RAMIPRIL
     Dates: end: 202107
  2. NITROLINGUAL 0,4 MG/DOS SUBLINGUALSPRAY [Concomitant]
     Dosage: 1 DOSE IF NEEDED
  3. ROSUVASTATIN. [Suspect]
     Active Substance: ROSUVASTATIN
     Route: 065
     Dates: end: 202107
  4. TROMBYL 75 MG TABLETT [Concomitant]
     Active Substance: ASPIRIN
     Dates: start: 20210722
  5. NAPROXEN. [Suspect]
     Active Substance: NAPROXEN
     Route: 065
     Dates: end: 202107
  6. SILDENAFIL ACCORD 100 MG FILMDRAGERAD TABLETT [Concomitant]
     Dosage: ONE. WHEN NEEDED
  7. EZETIMIB ACTAVIS 10 MG TABLETT [Concomitant]
     Active Substance: EZETIMIBE
     Dosage: UNIT DOSE: 10 MG
     Dates: start: 20210531

REACTIONS (3)
  - Gastric ulcer haemorrhage [Unknown]
  - Acute kidney injury [Unknown]
  - Rhabdomyolysis [Unknown]

NARRATIVE: CASE EVENT DATE: 20210710
